FAERS Safety Report 25092966 (Version 1)
Quarter: 2025Q1

REPORT INFORMATION
  Report Type: Spontaneous
  Country: US (occurrence: US)
  Receive Date: 20250319
  Receipt Date: 20250319
  Transmission Date: 20250409
  Serious: No
  Sender: ZYDUS PHARM
  Company Number: US-CADILA HEALTHCARE LIMITED-US-ZYDUS-113374

PATIENT

DRUGS (2)
  1. MECLIZINE HYDROCHLORIDE [Suspect]
     Active Substance: MECLIZINE HYDROCHLORIDE
     Indication: Vertigo
     Route: 048
     Dates: start: 202407, end: 2024
  2. MECLIZINE HYDROCHLORIDE [Suspect]
     Active Substance: MECLIZINE HYDROCHLORIDE
     Route: 048
     Dates: start: 20240930

REACTIONS (1)
  - Chest discomfort [Recovered/Resolved]

NARRATIVE: CASE EVENT DATE: 20241002
